FAERS Safety Report 6715732-X (Version None)
Quarter: 2010Q2

REPORT INFORMATION
  Report Type: 
  Country: None (occurrence: None)
  Receive Date: 20100506
  Receipt Date: 20100506
  Transmission Date: 20101027
  Serious: Yes (Other)
  Sender: FDA-Public Use
  Company Number: None

PATIENT
  Sex: Male
  Weight: 8.6 kg

DRUGS (2)
  1. TYLENOL INFANT DROPS 0.8 ML AS NEEDED [Suspect]
     Indication: PAIN
     Dosage: 0.8 ML AS NEEDED
     Dates: start: 20091220, end: 20100503
  2. TYLENOL INFANT DROPS 0.8 ML AS NEEDED [Suspect]
     Indication: TEETHING
     Dosage: 0.8 ML AS NEEDED
     Dates: start: 20091220, end: 20100503

REACTIONS (4)
  - DRUG INEFFECTIVE [None]
  - GASTROOESOPHAGEAL REFLUX DISEASE [None]
  - PRODUCT QUALITY ISSUE [None]
  - VOMITING [None]
